FAERS Safety Report 16230994 (Version 1)
Quarter: 2019Q2

REPORT INFORMATION
  Report Type: Report from Study
  Country: RU (occurrence: RU)
  Receive Date: 20190423
  Receipt Date: 20190423
  Transmission Date: 20190711
  Serious: Yes (Other)
  Sender: FDA-Public Use
  Company Number: RU-BAXTER-2019BAX007813

PATIENT

DRUGS (25)
  1. RITUXIMAB. [Suspect]
     Active Substance: RITUXIMAB
     Dosage: CONDITIONING REGIMENT AS PER R-BEEAM
     Route: 065
     Dates: start: 201806, end: 201807
  2. DEXAMETHASONE. [Suspect]
     Active Substance: DEXAMETHASONE
     Dosage: 2 INTRATHECAL CHEMOTHERAPY
     Route: 037
  3. RIBOMUSTIN [Suspect]
     Active Substance: BENDAMUSTINE HYDROCHLORIDE
     Indication: B-CELL LYMPHOMA STAGE IV
     Dosage: AS PER BEGERN
     Route: 065
     Dates: start: 201809
  4. RIBOMUSTIN [Suspect]
     Active Substance: BENDAMUSTINE HYDROCHLORIDE
     Dosage: AS PER BER2N3
     Route: 065
     Dates: start: 201810
  5. RITUXIMAB. [Suspect]
     Active Substance: RITUXIMAB
     Indication: B-CELL LYMPHOMA STAGE IV
     Dosage: 6 COURSES AS PER DA-EPOCH-R
     Route: 065
     Dates: start: 201710, end: 201802
  6. ETOPOSIDE. [Suspect]
     Active Substance: ETOPOSIDE
     Dosage: CONDITIONING REGIMENT AS PER R-BEEAM
     Route: 065
     Dates: start: 201806, end: 201807
  7. PREDNISOLONE. [Suspect]
     Active Substance: PREDNISOLONE
     Indication: B-CELL LYMPHOMA STAGE IV
     Dosage: 6 COURSES AS PER DA-EPOCH-R
     Route: 065
     Dates: start: 201710, end: 201802
  8. ARA-C [Suspect]
     Active Substance: CYTARABINE
     Indication: B-CELL LYMPHOMA STAGE IV
     Dosage: 2 COURSES AS PER DHAP-R
     Route: 065
     Dates: start: 201803, end: 201804
  9. PLATINOL [Suspect]
     Active Substance: CISPLATIN
     Indication: B-CELL LYMPHOMA STAGE IV
     Dosage: 2 COURSES AS PER DHAP-R
     Route: 065
     Dates: start: 201803, end: 201804
  10. CARMUSTINE. [Suspect]
     Active Substance: CARMUSTINE
     Indication: B-CELL LYMPHOMA STAGE IV
     Dosage: CONDITIONING REGIMENT AS PER R-BEEAM
     Route: 065
     Dates: start: 201806, end: 201807
  11. NIVOLUMAB [Suspect]
     Active Substance: NIVOLUMAB
     Indication: B-CELL LYMPHOMA STAGE IV
     Dosage: AS PER BEGERN
     Route: 065
     Dates: start: 201809
  12. RITUXIMAB. [Suspect]
     Active Substance: RITUXIMAB
     Dosage: AS PER BER2N3
     Route: 065
     Dates: start: 201810
  13. GEMCITABINE [Suspect]
     Active Substance: GEMCITABINE\GEMCITABINE HYDROCHLORIDE
     Indication: B-CELL LYMPHOMA STAGE IV
     Dosage: AS PER BEGERN
     Route: 065
     Dates: start: 201809
  14. RITUXIMAB. [Suspect]
     Active Substance: RITUXIMAB
     Dosage: 2 COURSES AS PER DHAP-R
     Route: 065
     Dates: start: 201803, end: 201804
  15. ETOPOSIDE. [Suspect]
     Active Substance: ETOPOSIDE
     Indication: B-CELL LYMPHOMA STAGE IV
     Dosage: 6 COURSES AS PER DA-EPOCH-R
     Route: 065
     Dates: start: 201710, end: 201802
  16. DEXAMETHASONE. [Suspect]
     Active Substance: DEXAMETHASONE
     Indication: B-CELL LYMPHOMA STAGE IV
     Dosage: 2 COURSES AS PER DHAP-R
     Route: 065
     Dates: start: 201803, end: 201804
  17. ONCOVIN [Suspect]
     Active Substance: VINCRISTINE SULFATE
     Indication: B-CELL LYMPHOMA STAGE IV
     Dosage: 6 COURSES AS PER DA-EPOCH-R
     Route: 065
     Dates: start: 201710, end: 201802
  18. ARA-C [Suspect]
     Active Substance: CYTARABINE
     Dosage: CONDITIONING REGIMENT AS PER R-BEEAM
     Route: 065
     Dates: start: 201806, end: 201807
  19. METHOTREXATE. [Suspect]
     Active Substance: METHOTREXATE
     Indication: B-CELL LYMPHOMA STAGE IV
     Dosage: 2 INTRATHECAL CHEMOTHERAPY
     Route: 037
  20. ENDOKSAN POROSHOK DLJA PRIGOTOVLENIJA RASTVORA DLJA VNUTRIVENNOGO VVED [Suspect]
     Active Substance: CYCLOPHOSPHAMIDE
     Indication: B-CELL LYMPHOMA STAGE IV
     Dosage: 6 COURSES AS PER DA-EPOCH-R
     Route: 065
     Dates: start: 201710, end: 201802
  21. RITUXIMAB. [Suspect]
     Active Substance: RITUXIMAB
     Dosage: AS PER BEGERN
     Route: 065
     Dates: start: 201809
  22. HYDROXYDAUNORUBICIN [Suspect]
     Active Substance: DOXORUBICIN
     Indication: B-CELL LYMPHOMA STAGE IV
     Dosage: 6 COURSES AS PER DA-EPOCH-R
     Route: 065
     Dates: start: 201710, end: 201802
  23. MELPHALAN. [Suspect]
     Active Substance: MELPHALAN
     Indication: B-CELL LYMPHOMA STAGE IV
     Dosage: CONDITIONING REGIMENT AS PER R-BEEAM
     Route: 065
     Dates: start: 201806, end: 201807
  24. NIVOLUMAB [Suspect]
     Active Substance: NIVOLUMAB
     Dosage: AS PER BER2N3
     Route: 065
     Dates: start: 201810
  25. CYTARABINE. [Suspect]
     Active Substance: CYTARABINE
     Indication: B-CELL LYMPHOMA STAGE IV
     Dosage: 2 INTRATHECAL CHEMOTHERAPY
     Route: 037

REACTIONS (3)
  - Disease progression [Unknown]
  - Bone marrow toxicity [Unknown]
  - B-cell lymphoma refractory [Recovering/Resolving]

NARRATIVE: CASE EVENT DATE: 2018
